FAERS Safety Report 9435215 (Version 2)
Quarter: 2013Q3

REPORT INFORMATION
  Report Type: Report from Study
  Country: BR (occurrence: BR)
  Receive Date: 20130801
  Receipt Date: 20130802
  Transmission Date: 20140515
  Serious: Yes (Life-Threatening, Hospitalization, Other)
  Sender: FDA-Public Use
  Company Number: BR-ROCHE-1079332

PATIENT
  Age: 30 Year
  Sex: Female
  Weight: 58 kg

DRUGS (16)
  1. MABTHERA [Suspect]
     Indication: RHEUMATOID ARTHRITIS
     Dosage: DATE OF THE LAST INFUSION : 27/MAY/2011
     Route: 042
     Dates: start: 20110513, end: 20110527
  2. MABTHERA [Suspect]
     Indication: SYSTEMIC LUPUS ERYTHEMATOSUS
  3. SOLU-MEDROL [Concomitant]
  4. VALSARTAN [Concomitant]
  5. ATACAND [Concomitant]
  6. LIPITOR [Concomitant]
  7. ATORVASTATIN [Concomitant]
  8. MYCOPHENOLATE SODIUM [Concomitant]
     Indication: IMMUNOSUPPRESSION
  9. FOLIC ACID [Concomitant]
  10. NORIPURUM FOLICO [Concomitant]
  11. PREDNISONE [Concomitant]
  12. AMLODIPINE [Concomitant]
  13. ATENSINA [Concomitant]
  14. PHENYTOIN [Concomitant]
  15. LAMOTRIGINE [Concomitant]
  16. COUMADIN [Concomitant]

REACTIONS (8)
  - Procedural complication [Recovering/Resolving]
  - Mental disorder [Unknown]
  - Thrombosis [Recovering/Resolving]
  - Alopecia [Unknown]
  - Anaemia [Not Recovered/Not Resolved]
  - Asthenia [Not Recovered/Not Resolved]
  - Renal disorder [Recovering/Resolving]
  - Tuberculosis of central nervous system [Recovering/Resolving]
